FAERS Safety Report 4355289-4 (Version None)
Quarter: 2004Q2

REPORT INFORMATION
  Report Type: 
  Country: None (occurrence: None)
  Receive Date: 20040504
  Receipt Date: 20031205
  Transmission Date: 20050107
  Serious: Yes (Death, Life-Threatening)
  Sender: FDA-Public Use
  Company Number: 200308006

PATIENT
  Age: 4 Year
  Sex: Male

DRUGS (2)
  1. PARACETAMOL PRODUCT (PARACETAMOL) [Suspect]
     Dosage: PO
     Route: 048
     Dates: start: 20001218
  2. MORPHINE [Suspect]

REACTIONS (2)
  - DRUG TOXICITY [None]
  - GENERAL PHYSICAL HEALTH DETERIORATION [None]
